FAERS Safety Report 6006864-2 (Version None)
Quarter: 2008Q4

REPORT INFORMATION
  Report Type: 
  Country: None (occurrence: None)
  Receive Date: 20081217
  Receipt Date: 20071108
  Transmission Date: 20090506
  Serious: No
  Sender: FDA-Public Use
  Company Number: US-ASTRAZENECA-2007UW26093

PATIENT
  Sex: Male

DRUGS (1)
  1. CRESTOR [Suspect]
     Indication: BLOOD CHOLESTEROL INCREASED
     Route: 048
     Dates: start: 20070301, end: 20071027

REACTIONS (5)
  - ASTHENIA [None]
  - DEPRESSION [None]
  - MYALGIA [None]
  - PROSTATE INFECTION [None]
  - SENSATION OF PRESSURE [None]
